FAERS Safety Report 6945833-2 (Version None)
Quarter: 2010Q3

REPORT INFORMATION
  Report Type: 
  Country: None (occurrence: None)
  Receive Date: 20100827
  Receipt Date: 20100817
  Transmission Date: 20110219
  Serious: Yes (Other)
  Sender: FDA-Public Use
  Company Number: US-JNJCH-2010018985

PATIENT
  Age: 19 Year
  Sex: Female
  Weight: 54.4 kg

DRUGS (1)
  1. LUBRIDERM INTENSIVE SKIN REPAIR OINTMENT [Suspect]
     Indication: DRY SKIN
     Dosage: TEXT:UNSPECIFIED ONE TIME
     Route: 061
     Dates: start: 20100815, end: 20100815

REACTIONS (1)
  - RASH PUSTULAR [None]
